FAERS Safety Report 8948067 (Version 1)
Quarter: 2012Q4

REPORT INFORMATION
  Report Type: 
  Country: CA (occurrence: CA)
  Receive Date: 20121204
  Receipt Date: 20121204
  Transmission Date: 20130627
  Serious: Yes (Other)
  Sender: FDA-Public Use
  Company Number: CA-BAYER-2012-126590

PATIENT
  Age: 48 Year
  Sex: Male

DRUGS (1)
  1. LEVITRA [Suspect]
     Dosage: 20 mg, ONCE
     Dates: start: 20121202

REACTIONS (5)
  - Erection increased [Recovered/Resolved]
  - Visual impairment [None]
  - Blepharitis [None]
  - Headache [None]
  - Urine abnormality [None]
